FAERS Safety Report 10479385 (Version 1)
Quarter: 2014Q3

REPORT INFORMATION
  Report Type: Spontaneous
  Country: US (occurrence: US)
  Receive Date: 20140926
  Receipt Date: 20140926
  Transmission Date: 20150326
  Serious: Yes (Other)
  Sender: FDA-Public Use
  Company Number: ALCN2014US005330

PATIENT
  Age: 81 Year
  Sex: Male

DRUGS (2)
  1. PHENYLEPHRINE HCL [Suspect]
     Active Substance: PHENYLEPHRINE HYDROCHLORIDE
     Indication: PUPIL DILATION PROCEDURE
     Dosage: 1 GTT, UNK
     Route: 047
  2. CYCLOPENTOLATE HCL [Suspect]
     Active Substance: CYCLOPENTOLATE HYDROCHLORIDE
     Indication: PUPIL DILATION PROCEDURE
     Dosage: 1 GTT, UNK
     Route: 047

REACTIONS (2)
  - Device dislocation [Recovered/Resolved]
  - Vision blurred [Unknown]
